FAERS Safety Report 7851930-X (Version None)
Quarter: 2011Q4

REPORT INFORMATION
  Report Type: 
  Country: None (occurrence: None)
  Receive Date: 20111026
  Receipt Date: 20111013
  Transmission Date: 20120403
  Serious: Yes (Other)
  Sender: FDA-Public Use
  Company Number: US-JNJFOC-20111006158

PATIENT
  Age: 48 Year
  Sex: Female

DRUGS (28)
  1. REMICADE [Suspect]
     Route: 042
     Dates: start: 20050401
  2. ACYCLOVIR [Concomitant]
     Route: 065
  3. FENTANYL-100 [Concomitant]
     Route: 062
  4. DAPSONE [Concomitant]
     Route: 065
     Dates: start: 20030601, end: 20051001
  5. TERBUTALINE SULFATE [Concomitant]
     Route: 065
  6. SERTRALINE HYDROCHLORIDE [Concomitant]
     Route: 065
  7. DAPSONE [Concomitant]
     Route: 065
     Dates: start: 19990901, end: 20000501
  8. PREDNISONE [Concomitant]
     Dosage: APPROXIMATELY 10 MG
     Route: 065
  9. REMICADE [Suspect]
     Route: 042
     Dates: start: 20051101
  10. REMICADE [Suspect]
     Route: 042
     Dates: start: 20060101
  11. REMICADE [Suspect]
     Route: 042
     Dates: start: 20050701
  12. REMICADE [Suspect]
     Route: 042
     Dates: start: 20050501
  13. COLCHICINE [Concomitant]
     Route: 065
     Dates: start: 19991001, end: 20021201
  14. THEOPHYLLINE [Concomitant]
     Route: 065
  15. IPRATROPIUM BROMIDE AND ALBUTEROL SULFATE [Concomitant]
     Route: 065
  16. REMICADE [Suspect]
     Indication: BEHCET'S SYNDROME
     Route: 042
     Dates: start: 20050901
  17. REMICADE [Suspect]
     Route: 042
     Dates: end: 20060201
  18. ESOMEPRAZOLE SODIUM [Concomitant]
     Route: 065
  19. PLAQUENIL [Concomitant]
     Route: 065
     Dates: start: 19990701, end: 20020101
  20. PREGABALIN [Concomitant]
     Route: 065
  21. PLAQUENIL [Concomitant]
     Route: 065
     Dates: start: 20020601
  22. PLAQUENIL [Concomitant]
     Route: 065
     Dates: start: 20040801
  23. FUROSEMIDE [Concomitant]
     Route: 065
  24. FLUTICASONE PROPIONATE/SALMETEROL [Concomitant]
     Route: 065
  25. ERYTHROMYCIN [Concomitant]
     Route: 065
  26. COLCHICINE [Concomitant]
     Route: 065
     Dates: start: 20040801
  27. PENTOXYPHYLLINE [Concomitant]
     Route: 065
  28. FOLIC ACID [Concomitant]
     Route: 065

REACTIONS (1)
  - SQUAMOUS CELL CARCINOMA OF SKIN [None]
